FAERS Safety Report 6894995-4 (Version None)
Quarter: 2010Q3

REPORT INFORMATION
  Report Type: 
  Country: None (occurrence: None)
  Receive Date: 20100802
  Receipt Date: 20100726
  Transmission Date: 20110219
  Serious: Yes (Hospitalization, Other)
  Sender: FDA-Public Use
  Company Number: US-ROCHE-717974

PATIENT
  Sex: Female

DRUGS (4)
  1. PEGASYS [Suspect]
     Indication: HEPATITIS C
     Route: 065
     Dates: start: 20080101
  2. PEGASYS [Suspect]
     Route: 065
     Dates: start: 20100623
  3. RIBAVIRIN [Suspect]
     Indication: HEPATITIS C
     Route: 048
     Dates: start: 20080101
  4. RIBAVIRIN [Suspect]
     Route: 048
     Dates: start: 20100623

REACTIONS (4)
  - BACTERIAL INFECTION [None]
  - DEVICE RELATED INFECTION [None]
  - LOSS OF CONSCIOUSNESS [None]
  - SEPSIS [None]
